FAERS Safety Report 8563448-X (Version None)
Quarter: 2012Q3

REPORT INFORMATION
  Report Type: 
  Country: None (occurrence: None)
  Receive Date: 20120802
  Receipt Date: 20120727
  Transmission Date: 20120928
  Serious: Yes (Other)
  Sender: FDA-Public Use
  Company Number: GB-ABBOTT-12P-167-0961681-00

PATIENT
  Age: 50 Year
  Sex: Male

DRUGS (2)
  1. VALPROIC ACID [Suspect]
     Route: 048
     Dates: start: 20120701
  2. VALPROIC ACID [Suspect]
     Indication: GRAND MAL CONVULSION
     Route: 048
     Dates: end: 20120701

REACTIONS (4)
  - ABDOMINAL DISCOMFORT [None]
  - MEDICATION RESIDUE [None]
  - CONVULSION [None]
  - DIARRHOEA [None]
